FAERS Safety Report 8247590-9 (Version None)
Quarter: 2012Q1

REPORT INFORMATION
  Report Type: 
  Country: None (occurrence: None)
  Receive Date: 20120330
  Receipt Date: 20120322
  Transmission Date: 20120608
  Serious: Yes (Disabling)
  Sender: FDA-Public Use
  Company Number: PHHY2012GB025360

PATIENT
  Age: 67 Year
  Sex: Male

DRUGS (7)
  1. OMEPRAZOLE [Suspect]
     Indication: HIATUS HERNIA
     Dosage: 20 MG, BID
     Route: 048
     Dates: start: 20120119, end: 20120209
  2. ATENOLOL [Concomitant]
  3. TOLTERODINE TARTRATE [Concomitant]
  4. ASPIRIN [Concomitant]
  5. SIMVASTATIN [Concomitant]
  6. RANITIDINE [Concomitant]
  7. TAMSULOSIN HCL [Concomitant]

REACTIONS (4)
  - HYPOMAGNESAEMIA [None]
  - ABASIA [None]
  - MYALGIA [None]
  - MUSCULAR WEAKNESS [None]
